FAERS Safety Report 5971818-9 (Version None)
Quarter: 2008Q4

REPORT INFORMATION
  Report Type: 
  Country: None (occurrence: None)
  Receive Date: 20081201
  Receipt Date: 20080829
  Transmission Date: 20090506
  Serious: No
  Sender: FDA-Public Use
  Company Number: US-BAYER-200813613BCC

PATIENT
  Age: 44 Year
  Sex: Female
  Weight: 136 kg

DRUGS (6)
  1. ALEVE (CAPLET) [Suspect]
     Indication: ARTHRALGIA
     Dosage: TOTAL DAILY DOSE: 440 MG  UNIT DOSE: 440 MG
     Dates: start: 20080601
  2. LASIX [Concomitant]
     Dates: start: 20070101
  3. VITAMIN A [Concomitant]
  4. ASCORBIC ACID [Concomitant]
  5. TYLENOL (CAPLET) [Concomitant]
  6. MULTI-VITAMIN [Concomitant]

REACTIONS (1)
  - OEDEMA PERIPHERAL [None]
